FAERS Safety Report 9081263 (Version 1)
Quarter: 2013Q1

REPORT INFORMATION
  Report Type: Spontaneous
  Country: US (occurrence: US)
  Receive Date: 20130130
  Receipt Date: 20130130
  Transmission Date: 20140127
  Serious: No
  Sender: FDA-Public Use
  Company Number: US-B.I. PHARMACEUTICALS,INC./RIDGEFIELD-2013-BI-02446BP

PATIENT
  Sex: Female

DRUGS (2)
  1. ZANTAC 150 (RANITIDINE HYDROCHLORIDE) [Suspect]
     Indication: DYSPEPSIA
     Route: 048
     Dates: start: 20130128, end: 20130128
  2. ZANTAC 150 (RANITIDINE HYDROCHLORIDE) [Suspect]
     Indication: DYSPEPSIA

REACTIONS (2)
  - Gastrointestinal sounds abnormal [Recovered/Resolved]
  - Vulval disorder [Recovered/Resolved]
